FAERS Safety Report 15738065 (Version 1)
Quarter: 2018Q4

REPORT INFORMATION
  Report Type: Spontaneous
  Country: BE (occurrence: BE)
  Receive Date: 20181219
  Receipt Date: 20181219
  Transmission Date: 20190205
  Serious: Yes (Other)
  Sender: FDA-Public Use
  Company Number: BE-AXELLIA-002122

PATIENT
  Age: 80 Year
  Sex: Male

DRUGS (3)
  1. VANCOMYCIN [Suspect]
     Active Substance: VANCOMYCIN
     Indication: PNEUMONIA STAPHYLOCOCCAL
     Dosage: LOADING DOSE
  2. LINEZOLID. [Suspect]
     Active Substance: LINEZOLID
     Indication: PNEUMONIA STAPHYLOCOCCAL
     Dosage: EVERY 12 H
  3. PIPERACILLIN SODIUM/TAZOBACTAM SODIUM [Concomitant]
     Indication: EVIDENCE BASED TREATMENT

REACTIONS (3)
  - Renal impairment [Not Recovered/Not Resolved]
  - Anuria [Not Recovered/Not Resolved]
  - Blood creatinine increased [Not Recovered/Not Resolved]
